FAERS Safety Report 16449010 (Version 3)
Quarter: 2019Q3

REPORT INFORMATION
  Report Type: Report from Study
  Country: DK (occurrence: DK)
  Receive Date: 20190619
  Receipt Date: 20190703
  Transmission Date: 20191004
  Serious: Yes (Hospitalization)
  Sender: FDA-Public Use
  Company Number: DK-ROCHE-2336226

PATIENT
  Age: 53 Year
  Sex: Male
  Weight: 72.6 kg

DRUGS (2)
  1. VENETOCLAX. [Suspect]
     Active Substance: VENETOCLAX
     Indication: CHRONIC LYMPHOCYTIC LEUKAEMIA
     Dosage: LAST DOSE RECEIVED (PRIOR TO SAE) AT 8/JUN/2019 (DOSE: 30 MG)
     Route: 048
     Dates: start: 20190528
  2. OBINUTUZUMAB. [Suspect]
     Active Substance: OBINUTUZUMAB
     Indication: CHRONIC LYMPHOCYTIC LEUKAEMIA
     Dosage: LAST DOSE RECEIVED (PRIOR TO SAE) AT 04/JUN/2019 (DOSE: 1000 MG)
     Route: 042
     Dates: start: 20190507

REACTIONS (3)
  - Infection [Unknown]
  - Bacterial infection [Recovered/Resolved]
  - Pleurisy [Recovered/Resolved]

NARRATIVE: CASE EVENT DATE: 20190610
